FAERS Safety Report 16597888 (Version 1)
Quarter: 2019Q3

REPORT INFORMATION
  Report Type: Spontaneous
  Country: US (occurrence: US)
  Receive Date: 20190719
  Receipt Date: 20190719
  Transmission Date: 20191004
  Serious: No
  Sender: FDA-Public Use
  Company Number: US-PFIZER INC-2019303685

PATIENT
  Age: 47 Year
  Sex: Female
  Weight: 52.15 kg

DRUGS (3)
  1. SILDENAFIL CITRATE. [Suspect]
     Active Substance: SILDENAFIL CITRATE
     Dosage: UNK
  2. REMODULIN [Suspect]
     Active Substance: TREPROSTINIL
     Indication: PULMONARY ARTERIAL HYPERTENSION
     Dosage: UNK (58 NG/KG/MIN)
     Route: 058
     Dates: start: 20190506
  3. LETAIRIS [Suspect]
     Active Substance: AMBRISENTAN
     Dosage: UNK

REACTIONS (5)
  - Application site pain [Unknown]
  - Application site erythema [Unknown]
  - Abdominal distension [Unknown]
  - Fatigue [Unknown]
  - Application site pruritus [Unknown]
